FAERS Safety Report 24332167 (Version 3)
Quarter: 2025Q1

REPORT INFORMATION
  Report Type: Report from Study
  Country: US (occurrence: US)
  Receive Date: 20240918
  Receipt Date: 20250319
  Transmission Date: 20250409
  Serious: Yes (Hospitalization)
  Sender: ROCHE
  Company Number: US-ROCHE-10000079865

PATIENT
  Age: 56 Year
  Sex: Female
  Weight: 82 kg

DRUGS (56)
  1. OCRELIZUMAB [Suspect]
     Active Substance: OCRELIZUMAB
     Indication: Multiple sclerosis
     Route: 065
     Dates: start: 20210205
  2. OCRELIZUMAB [Suspect]
     Active Substance: OCRELIZUMAB
     Route: 065
     Dates: start: 20210219
  3. OCRELIZUMAB [Suspect]
     Active Substance: OCRELIZUMAB
     Route: 065
     Dates: start: 20210706
  4. OCRELIZUMAB [Suspect]
     Active Substance: OCRELIZUMAB
     Route: 065
     Dates: start: 20211223
  5. OCRELIZUMAB [Suspect]
     Active Substance: OCRELIZUMAB
     Route: 065
     Dates: start: 20220613
  6. OCRELIZUMAB [Suspect]
     Active Substance: OCRELIZUMAB
     Route: 065
     Dates: start: 20221128
  7. OCRELIZUMAB [Suspect]
     Active Substance: OCRELIZUMAB
     Route: 065
     Dates: start: 20230515
  8. OCRELIZUMAB [Suspect]
     Active Substance: OCRELIZUMAB
     Route: 065
     Dates: start: 20231113
  9. OCRELIZUMAB [Suspect]
     Active Substance: OCRELIZUMAB
     Route: 065
     Dates: start: 20240430
  10. VITAMIN B12 [Concomitant]
     Active Substance: CYANOCOBALAMIN
  11. ASPIRIN [Concomitant]
     Active Substance: ASPIRIN
     Indication: Multiple sclerosis
     Dates: start: 20200108
  12. SUMATRIPTAN [Concomitant]
     Active Substance: SUMATRIPTAN
     Dates: start: 20210201
  13. DIPHENHYDRAMINE [Concomitant]
     Active Substance: DIPHENHYDRAMINE
  14. FAMOTIDINE [Concomitant]
     Active Substance: FAMOTIDINE
  15. CODEINE [Concomitant]
     Active Substance: CODEINE
  16. VALACYCLOVIR [Concomitant]
     Active Substance: VALACYCLOVIR HYDROCHLORIDE
     Dates: start: 20240111
  17. CLONAZEPAM [Concomitant]
     Active Substance: CLONAZEPAM
     Dates: start: 20240207
  18. HERBALS\TURMERIC [Concomitant]
     Active Substance: HERBALS\TURMERIC
     Dates: start: 20240312
  19. ALBUTEROL [Concomitant]
     Active Substance: ALBUTEROL
     Dates: start: 20240724
  20. ALBUTEROL [Concomitant]
     Active Substance: ALBUTEROL
     Dates: start: 20240822, end: 20240905
  21. ATORVASTATIN [Concomitant]
     Active Substance: ATORVASTATIN
     Dates: start: 20240802
  22. LEVOTHYROXINE [Concomitant]
     Active Substance: LEVOTHYROXINE
     Dates: start: 20240802
  23. PANTOPRAZOLE [Concomitant]
     Active Substance: PANTOPRAZOLE
     Indication: Gastrooesophageal reflux disease
     Dates: start: 20240802
  24. PANTOPRAZOLE [Concomitant]
     Active Substance: PANTOPRAZOLE
     Dates: start: 20241025, end: 20250225
  25. BENZONATATE [Concomitant]
     Active Substance: BENZONATATE
     Dates: start: 20240818
  26. ATOVAQUONE [Concomitant]
     Active Substance: ATOVAQUONE
     Dates: start: 20240902
  27. ACETAMINOPHEN [Concomitant]
     Active Substance: ACETAMINOPHEN
  28. ALTEPLASE [Concomitant]
     Active Substance: ALTEPLASE
     Dates: start: 20240831, end: 20240905
  29. BISACODYL [Concomitant]
     Active Substance: BISACODYL
     Dates: start: 20240826, end: 20240905
  30. DEXMEDETOMIDINE [Concomitant]
     Active Substance: DEXMEDETOMIDINE
     Dates: start: 20240829, end: 20240902
  31. DEXTROSE [Concomitant]
     Active Substance: DEXTROSE MONOHYDRATE
     Dates: start: 20240823, end: 20240902
  32. ENOXAPARIN [Concomitant]
     Active Substance: ENOXAPARIN
     Dates: start: 20240823, end: 20240905
  33. FENTANYL [Concomitant]
     Active Substance: FENTANYL
     Dates: start: 20240831, end: 20240905
  34. FLUCONAZOLE [Concomitant]
     Active Substance: FLUCONAZOLE
     Dates: start: 20240813, end: 20240905
  35. FUROSEMIDE [Concomitant]
     Active Substance: FUROSEMIDE
     Dates: start: 20240903, end: 20240904
  36. DEXTROSE [Concomitant]
     Active Substance: DEXTROSE MONOHYDRATE
     Dates: start: 20240823, end: 20240902
  37. GUAIFENESIN [Concomitant]
     Active Substance: GUAIFENESIN
     Dates: start: 20240818, end: 20240901
  38. INSULIN ASPART [Concomitant]
     Active Substance: INSULIN ASPART
     Dates: start: 20240826, end: 20240902
  39. INSULIN GLARGINE [Concomitant]
     Active Substance: INSULIN GLARGINE
     Dates: start: 20240825, end: 20240905
  40. MAGNESIUM HYDROXIDE [Concomitant]
     Active Substance: MAGNESIUM HYDROXIDE
     Dates: start: 20240826, end: 20240905
  41. MAGNESIUM SULFATE [Concomitant]
     Active Substance: MAGNESIUM SULFATE
     Dates: start: 20240902, end: 20240904
  42. NALOXONE [Concomitant]
     Active Substance: NALOXONE
     Dates: start: 20240822, end: 20240905
  43. NYSTATIN [Concomitant]
     Active Substance: NYSTATIN
     Dates: start: 20240905, end: 20240905
  44. POLYETHYLENE GLYCOL [Concomitant]
     Active Substance: POLYETHYLENE GLYCOL
  45. PREDNISONE [Concomitant]
     Active Substance: PREDNISONE
     Dates: start: 20241204
  46. SULFAMETHOXAZOLE [Concomitant]
     Active Substance: SULFAMETHOXAZOLE
  47. CEFTRIAXONE [Concomitant]
     Active Substance: CEFTRIAXONE
  48. AZITHROMYCIN [Concomitant]
     Active Substance: AZITHROMYCIN
  49. CEFEPIME [Concomitant]
     Active Substance: CEFEPIME HYDROCHLORIDE
  50. VANCOMYCIN [Concomitant]
     Active Substance: VANCOMYCIN
  51. CIPROFLOXACIN [Concomitant]
     Active Substance: CIPROFLOXACIN
  52. SOLU-MEDROL [Concomitant]
     Active Substance: METHYLPREDNISOLONE SODIUM SUCCINATE
     Dates: start: 20240827, end: 20240830
  53. DIMETHYL FUMARATE [Concomitant]
     Active Substance: DIMETHYL FUMARATE
     Dates: start: 20241010
  54. APIXABAN [Concomitant]
     Active Substance: APIXABAN
     Indication: Deep vein thrombosis
     Dates: start: 20241025
  55. METOPROLOL SUCCINATE [Concomitant]
     Active Substance: METOPROLOL SUCCINATE
     Indication: Blood pressure measurement
     Dates: start: 20240222
  56. MINOXIDIL [Concomitant]
     Active Substance: MINOXIDIL
     Indication: Alopecia
     Dates: start: 20241210, end: 20250225

REACTIONS (1)
  - Acute respiratory failure [Recovered/Resolved with Sequelae]

NARRATIVE: CASE EVENT DATE: 20240818
